FAERS Safety Report 9690558 (Version 1)
Quarter: 2013Q4

REPORT INFORMATION
  Report Type: Spontaneous
  Country: US (occurrence: US)
  Receive Date: 20131115
  Receipt Date: 20131115
  Transmission Date: 20140711
  Serious: No
  Sender: FDA-Public Use
  Company Number: US-009507513-1311USA002497

PATIENT
  Sex: Female

DRUGS (1)
  1. NEXPLANON [Suspect]

REACTIONS (2)
  - Injury [Unknown]
  - Product quality issue [Unknown]
